FAERS Safety Report 16193884 (Version 2)
Quarter: 2019Q2

REPORT INFORMATION
  Report Type: Report from Study
  Country: DE (occurrence: DE)
  Receive Date: 20190413
  Receipt Date: 20190621
  Transmission Date: 20190711
  Serious: Yes (Hospitalization)
  Sender: FDA-Public Use
  Company Number: DE-ROCHE-2300148

PATIENT
  Age: 54 Year
  Sex: Female

DRUGS (6)
  1. TOCILIZUMAB. [Suspect]
     Active Substance: TOCILIZUMAB
     Indication: RHEUMATOID ARTHRITIS
     Route: 058
     Dates: end: 20190307
  2. IBUPROFEN. [Concomitant]
     Active Substance: IBUPROFEN
  3. SIMVASTATIN. [Concomitant]
     Active Substance: SIMVASTATIN
  4. PREDNISOLON [PREDNISOLONE] [Concomitant]
     Active Substance: PREDNISOLONE
  5. FOLIC ACID. [Concomitant]
     Active Substance: FOLIC ACID
  6. COLECALCIFEROL [Concomitant]
     Active Substance: CHOLECALCIFEROL

REACTIONS (1)
  - Idiopathic interstitial pneumonia [Not Recovered/Not Resolved]

NARRATIVE: CASE EVENT DATE: 201811
